FAERS Safety Report 14252727 (Version 1)
Quarter: 2017Q4

REPORT INFORMATION
  Report Type: Report from Study
  Country: FR (occurrence: FR)
  Receive Date: 20171206
  Receipt Date: 20171206
  Transmission Date: 20180321
  Serious: Yes (Other)
  Sender: FDA-Public Use
  Company Number: FR-ROCHE-2031931

PATIENT
  Sex: Female

DRUGS (2)
  1. RITUXIMAB. [Suspect]
     Active Substance: RITUXIMAB
     Indication: PURPURA
     Route: 065
     Dates: start: 20111026
  2. RITUXIMAB. [Suspect]
     Active Substance: RITUXIMAB
     Indication: HAEMORRHAGE

REACTIONS (1)
  - Immunodeficiency common variable [Unknown]

NARRATIVE: CASE EVENT DATE: 2013
